FAERS Safety Report 5787936-4 (Version None)
Quarter: 2008Q2

REPORT INFORMATION
  Report Type: 
  Country: None (occurrence: None)
  Receive Date: 20080625
  Receipt Date: 20080619
  Transmission Date: 20081010
  Serious: Yes (Other)
  Sender: FDA-Public Use
  Company Number: B0524919A

PATIENT

DRUGS (1)
  1. AVANDIA [Suspect]
     Route: 065
     Dates: start: 20030101, end: 20040201

REACTIONS (1)
  - HIGH DENSITY LIPOPROTEIN DECREASED [None]
